FAERS Safety Report 18410459 (Version 3)
Quarter: 2020Q4

REPORT INFORMATION
  Report Type: Report from Study
  Country: US (occurrence: US)
  Receive Date: 20201021
  Receipt Date: 20201227
  Transmission Date: 20210114
  Serious: No
  Sender: FDA-Public Use
  Company Number: NVSC2020US282590

PATIENT
  Age: 39 Year
  Sex: Female

DRUGS (1)
  1. KESIMPTA [Suspect]
     Active Substance: OFATUMUMAB
     Indication: PRODUCT USED FOR UNKNOWN INDICATION
     Dosage: 20 MG, QMO (SUBCUTANEOUS - BENEATH THE SKIN)
     Route: 058
     Dates: start: 20201013

REACTIONS (8)
  - Hypoaesthesia [Unknown]
  - Pyrexia [Recovered/Resolved]
  - Headache [Unknown]
  - Migraine [Recovered/Resolved]
  - Chills [Recovered/Resolved]
  - Discomfort [Unknown]
  - Urinary tract infection [Recovering/Resolving]
  - Drug ineffective [Unknown]

NARRATIVE: CASE EVENT DATE: 20201013
